FAERS Safety Report 22316875 (Version 1)
Quarter: 2023Q2

REPORT INFORMATION
  Report Type: Spontaneous
  Country: US (occurrence: US)
  Receive Date: 20230513
  Receipt Date: 20230513
  Transmission Date: 20230722
  Serious: No
  Sender: FDA-Public Use
  Company Number: US-AMGEN-USASP2023082236

PATIENT
  Age: 62 Year
  Sex: Female

DRUGS (7)
  1. REPATHA [Suspect]
     Active Substance: EVOLOCUMAB
     Indication: Blood cholesterol increased
     Dosage: 140 MILLIGRAM, Q2WK
     Route: 058
     Dates: start: 2023
  2. CLONAZEPAM [Concomitant]
     Active Substance: CLONAZEPAM
     Dosage: 25 MILLIGRAM
  3. DULOXETINE [Concomitant]
     Active Substance: DULOXETINE
     Indication: Product used for unknown indication
     Dosage: 37.5 MILLIGRAM
     Route: 058
  4. METHIONINE [Concomitant]
     Active Substance: METHIONINE
     Indication: Body fat disorder
     Dosage: UNK
     Dates: start: 20230429
  5. INOSITOL [Concomitant]
     Active Substance: INOSITOL
     Indication: Body fat disorder
     Dosage: UNK
     Dates: start: 20230429
  6. CHOLINE [Concomitant]
     Active Substance: CHOLINE
     Indication: Body fat disorder
     Dosage: UNK
     Dates: start: 20230429
  7. BOTOX [Concomitant]
     Active Substance: ONABOTULINUMTOXINA
     Indication: Product used for unknown indication
     Dosage: UNK UNK, UNK
     Route: 058
     Dates: start: 2023

REACTIONS (2)
  - Chest pain [Recovered/Resolved]
  - Joint stiffness [Recovered/Resolved]

NARRATIVE: CASE EVENT DATE: 20230501
